FAERS Safety Report 15804280 (Version 1)
Quarter: 2019Q1

REPORT INFORMATION
  Report Type: Spontaneous
  Country: GB (occurrence: GB)
  Receive Date: 20190109
  Receipt Date: 20190109
  Transmission Date: 20190417
  Serious: Yes (Other)
  Sender: FDA-Public Use
  Company Number: GB-009507513-1901GBR000844

PATIENT
  Age: 66 Year
  Sex: Male
  Weight: 88 kg

DRUGS (14)
  1. TIMOLOL. [Concomitant]
     Active Substance: TIMOLOL
     Dosage: ONE DROP ONCE DAILY TO EACH EYE
     Dates: start: 20171010
  2. DERMOL (BENZALKONIUM CHLORIDE (+) ISOPROPYL MYRISTATE (+) MINERAL OIL) [Concomitant]
     Dosage: USE AS DIRECTED.
     Dates: start: 20171010
  3. COCOIS [Concomitant]
     Dosage: APPLY TO SCALP ONCE WEEKLY AS DIRECTED.
     Dates: start: 20181204
  4. AMLODIPINE [Suspect]
     Active Substance: AMLODIPINE BESYLATE
     Dosage: 5 MILLIGRAM, QD
     Dates: start: 20171010
  5. CETRABEN EMOLLIENT CREAM [Concomitant]
     Dosage: USE AS NEEDED
     Dates: start: 20171010
  6. CAPASAL [Concomitant]
     Dosage: USE DAILY.
     Dates: start: 20171010
  7. DESLORATADINE. [Concomitant]
     Active Substance: DESLORATADINE
     Dosage: 1 DOSAGE FORM, QD
     Dates: start: 20171010
  8. OMEPRAZOLE. [Concomitant]
     Active Substance: OMEPRAZOLE
     Dosage: 2 DOSAGE FORM, QD
     Dates: start: 20171010
  9. DICLOFENAC DIETHYLAMINE [Concomitant]
     Active Substance: DICLOFENAC DIETHYLAMINE
     Dosage: APPLY.
     Dates: start: 20171010
  10. FLUTICASONE PROPIONATE. [Concomitant]
     Active Substance: FLUTICASONE PROPIONATE
     Dosage: TO EACH NOSTRIL EACH MORNING.
     Route: 045
     Dates: start: 20171010
  11. GAVISCON ADVANCE (POTASSIUM BICARBONATE (+) SODIUM ALGINATE) [Concomitant]
     Dosage: 3 TIMES A DAY AND 1 AT NIGHT.
     Dates: start: 20171010
  12. PERINDOPRIL ERBUMINE. [Concomitant]
     Active Substance: PERINDOPRIL ERBUMINE
     Dosage: 1 DOSAGE FORM, QD
     Dates: start: 20180622
  13. SIMVASTATIN. [Suspect]
     Active Substance: SIMVASTATIN
  14. BETAMETHASONE VALERATE. [Concomitant]
     Active Substance: BETAMETHASONE VALERATE
     Dosage: USE AS PER DERMATOLOGIST.
     Dates: start: 20171010, end: 20181204

REACTIONS (2)
  - Rash generalised [Recovered/Resolved]
  - Drug interaction [Unknown]

NARRATIVE: CASE EVENT DATE: 20181204
